FAERS Safety Report 17359904 (Version 1)
Quarter: 2020Q1

REPORT INFORMATION
  Report Type: Spontaneous
  Country: FR (occurrence: FR)
  Receive Date: 20200203
  Receipt Date: 20200203
  Transmission Date: 20200409
  Serious: Yes (Hospitalization)
  Sender: FDA-Public Use
  Company Number: FR-ACCORD-171422

PATIENT
  Age: 71 Year
  Sex: Male
  Weight: 103 kg

DRUGS (19)
  1. PARACETAMOL [Concomitant]
     Active Substance: ACETAMINOPHEN
     Route: 048
  2. METFORMIN [Concomitant]
     Active Substance: METFORMIN HYDROCHLORIDE
     Route: 048
  3. OXALIPLATIN. [Suspect]
     Active Substance: OXALIPLATIN
     Indication: ADENOCARCINOMA PANCREAS
     Dosage: FOLFIRINOX PROTOCOL WITH 100% OXALIPLATIN
     Route: 041
     Dates: start: 20191118, end: 20191118
  4. ARIXTRA [Concomitant]
     Active Substance: FONDAPARINUX SODIUM
     Route: 058
  5. PANTOPRAZOLE [Concomitant]
     Active Substance: PANTOPRAZOLE
     Route: 048
  6. FLUOROURACILE ACCORD [Suspect]
     Active Substance: FLUOROURACIL
     Indication: ADENOCARCINOMA PANCREAS
     Dosage: PROTOCOLE FOLFIRINOX AVEC 50% 5FU
     Route: 041
     Dates: start: 20191118, end: 20191119
  7. FOLINIC ACID [Concomitant]
     Active Substance: LEUCOVORIN
     Route: 041
  8. GLICLAZIDE [Concomitant]
     Active Substance: GLICLAZIDE
     Route: 048
  9. FUROSEMIDE. [Concomitant]
     Active Substance: FUROSEMIDE
     Route: 048
  10. DESLORATADINE. [Concomitant]
     Active Substance: DESLORATADINE
     Route: 048
  11. RACECADOTRIL [Concomitant]
     Active Substance: RACECADOTRIL
     Route: 048
  12. ENTRESTO [Concomitant]
     Active Substance: SACUBITRIL\VALSARTAN
     Route: 048
  13. IRINOTECAN [Suspect]
     Active Substance: IRINOTECAN
     Indication: ADENOCARCINOMA PANCREAS
     Dosage: FOLFIRINOX PROTOCOL WITH 50% IRINOTECAN
     Route: 041
     Dates: start: 20191118, end: 20191118
  14. POTASSIUM [Concomitant]
     Active Substance: POTASSIUM
     Route: 048
  15. TRESIBA [Concomitant]
     Active Substance: INSULIN DEGLUDEC
     Route: 058
  16. IVABRADINE/IVABRADINE HYDROCHLORIDE [Concomitant]
     Active Substance: IVABRADINE HYDROCHLORIDE
     Route: 048
  17. SOTALOL. [Concomitant]
     Active Substance: SOTALOL
     Route: 048
  18. HYDROXYZINE [Concomitant]
     Active Substance: HYDROXYZINE HYDROCHLORIDE
     Route: 048
  19. SMECTA [Concomitant]
     Active Substance: MONTMORILLONITE
     Route: 048

REACTIONS (4)
  - Off label use [Unknown]
  - Acute kidney injury [Recovered/Resolved]
  - Diarrhoea [Recovered/Resolved]
  - Hypokalaemia [Recovered/Resolved]

NARRATIVE: CASE EVENT DATE: 20191118
